FAERS Safety Report 17096190 (Version 2)
Quarter: 2019Q4

REPORT INFORMATION
  Report Type: Spontaneous
  Country: AR (occurrence: AR)
  Receive Date: 20191202
  Receipt Date: 20191213
  Transmission Date: 20200122
  Serious: Yes (Other)
  Sender: FDA-Public Use
  Company Number: AR-SA-2019SA331464

PATIENT
  Age: 15 Year
  Sex: Male

DRUGS (1)
  1. THYMOGLOBULIN [Suspect]
     Active Substance: LAPINE T-LYMPHOCYTE IMMUNE GLOBULIN
     Dosage: UNK
     Dates: start: 20191029

REACTIONS (7)
  - Arthralgia [Unknown]
  - Joint swelling [Unknown]
  - Pyrexia [Unknown]
  - Myalgia [Unknown]
  - Aplastic anaemia [Unknown]
  - Rash [Unknown]
  - Serum sickness [Unknown]

NARRATIVE: CASE EVENT DATE: 20191108
